FAERS Safety Report 4297389-3 (Version None)
Quarter: 2004Q1

REPORT INFORMATION
  Report Type: 
  Country: None (occurrence: None)
  Receive Date: 20040212
  Receipt Date: 20031111
  Transmission Date: 20041129
  Serious: Yes (Other)
  Sender: FDA-Public Use
  Company Number: A03200302733

PATIENT
  Age: 59 Year
  Sex: Male

DRUGS (1)
  1. AMBIEN [Suspect]

REACTIONS (1)
  - AMNESIA [None]
